FAERS Safety Report 7070883-8 (Version None)
Quarter: 2010Q4

REPORT INFORMATION
  Report Type: 
  Country: None (occurrence: None)
  Receive Date: 20101029
  Receipt Date: 20101027
  Transmission Date: 20110411
  Serious: Yes (Other)
  Sender: FDA-Public Use
  Company Number: US-PFIZER INC-2010137175

PATIENT
  Sex: Female
  Weight: 53.061 kg

DRUGS (3)
  1. XALATAN [Suspect]
     Indication: GLAUCOMA
     Dosage: UNK
  2. BETOPTIC [Concomitant]
     Dosage: UNK
  3. DIAMOX SRC [Concomitant]
     Dosage: 250 MG, 3X/DAY
     Route: 048

REACTIONS (1)
  - INTRAOCULAR PRESSURE DECREASED [None]
